FAERS Safety Report 22585575 (Version 6)
Quarter: 2024Q1

REPORT INFORMATION
  Report Type: Spontaneous
  Country: US (occurrence: US)
  Receive Date: 20230610
  Receipt Date: 20240110
  Transmission Date: 20240410
  Serious: Yes (Other)
  Sender: FDA-Public Use
  Company Number: US-AMGEN-USASP2023096899

PATIENT
  Age: 63 Year
  Sex: Male

DRUGS (7)
  1. TAVNEOS [Suspect]
     Active Substance: AVACOPAN
     Indication: Microscopic polyangiitis
     Dosage: 30 MILLIGRAM, BID (TAKE 3 CAPSULES (30 MG) BY MOUTH TWICE DAILY WITH FOOD)
     Route: 048
     Dates: start: 20230511
  2. TAVNEOS [Suspect]
     Active Substance: AVACOPAN
     Dosage: 30 MILLIGRAM, BID (TAKE 3 CAPSULES (30 MG) BY MOUTH TWICE DAILY WITH FOOD)
     Route: 048
  3. TAVNEOS [Suspect]
     Active Substance: AVACOPAN
     Dosage: 30 MILLIGRAM, BID (TAKE 3 CAPSULES (30 MG) BY MOUTH TWICE DAILY WITH FOOD)
     Route: 048
  4. TAVNEOS [Suspect]
     Active Substance: AVACOPAN
     Dosage: 30 MILLIGRAM, BID (TAKE 3 CAPSULES (30 MG) BY MOUTH TWICE DAILY WITH FOOD)
     Route: 048
  5. TAVNEOS [Suspect]
     Active Substance: AVACOPAN
     Dosage: 30 MILLIGRAM, BID (TAKE 3 CAPSULES (30 MG) BY MOUTH TWICE DAILY WITH FOOD)
     Route: 048
  6. ELIQUIS [Concomitant]
     Active Substance: APIXABAN
  7. PREDNISONE [Concomitant]
     Active Substance: PREDNISONE
     Indication: Product used for unknown indication
     Dosage: 20 MILLIGRAM, AND LATER DOSE REDUCED

REACTIONS (24)
  - Nephrolithiasis [Recovered/Resolved]
  - Insomnia [Unknown]
  - Depression [Unknown]
  - Abdominal distension [Unknown]
  - Weight increased [Unknown]
  - Weight decreased [Unknown]
  - Joint swelling [Unknown]
  - Muscular weakness [Unknown]
  - Fatigue [Unknown]
  - Hepatic enzyme increased [Unknown]
  - Blood test abnormal [Unknown]
  - Paraesthesia [Unknown]
  - Diarrhoea [Unknown]
  - Swelling face [Unknown]
  - Abdominal pain upper [Unknown]
  - Cholelithiasis [Unknown]
  - Dizziness [Unknown]
  - Contusion [Unknown]
  - Scratch [Unknown]
  - Dyspnoea [Unknown]
  - Hypoaesthesia [Unknown]
  - Oedema [Unknown]
  - Pain [Unknown]
  - Peripheral swelling [Unknown]

NARRATIVE: CASE EVENT DATE: 20230101
